FAERS Safety Report 5409724-0 (Version None)
Quarter: 2007Q3

REPORT INFORMATION
  Report Type: 
  Country: None (occurrence: None)
  Receive Date: 20070809
  Receipt Date: 20070803
  Transmission Date: 20080115
  Serious: Yes (Death)
  Sender: FDA-Public Use
  Company Number: B0378918A

PATIENT
  Age: 52 Year
  Sex: Male

DRUGS (9)
  1. CARVEDILOL [Suspect]
     Indication: HYPERTENSION
     Dosage: 20MG PER DAY
     Route: 048
     Dates: start: 20050309, end: 20050309
  2. OSELTAMIVIR [Suspect]
     Dosage: 75MG PER DAY
     Route: 048
     Dates: start: 20050309, end: 20050309
  3. TIARAMIDE HYDROCHLORIDE [Suspect]
     Indication: BRONCHITIS
     Dosage: 100MG THREE TIMES PER DAY
     Route: 048
     Dates: start: 20050309, end: 20050309
  4. FLEROXACIN [Concomitant]
     Dates: start: 20050309, end: 20050309
  5. LEUCOMYCIN [Concomitant]
     Dates: start: 20050309, end: 20050309
  6. SERRAPEPTASE [Concomitant]
     Dates: start: 20050309, end: 20050309
  7. TRIMETOQUINOL HYDROCHLORIDE [Concomitant]
     Dates: start: 20050309, end: 20050309
  8. FAMOTIDINE [Concomitant]
     Dates: start: 20050309, end: 20050309
  9. PREDNISOLONE [Concomitant]
     Dates: start: 20050309, end: 20050309

REACTIONS (4)
  - CARDIO-RESPIRATORY ARREST [None]
  - DEATH [None]
  - DYSPNOEA [None]
  - TACHYCARDIA [None]
